FAERS Safety Report 6707811-8 (Version None)
Quarter: 2010Q2

REPORT INFORMATION
  Report Type: 
  Country: None (occurrence: None)
  Receive Date: 20100503
  Receipt Date: 20090828
  Transmission Date: 20101027
  Serious: No
  Sender: FDA-Public Use
  Company Number: US-ASTRAZENECA-2009SE10753

PATIENT

DRUGS (1)
  1. NEXIUM [Suspect]

REACTIONS (1)
  - ABDOMINAL DISCOMFORT [None]
